FAERS Safety Report 17817701 (Version 4)
Quarter: 2020Q2

REPORT INFORMATION
  Report Type: Spontaneous
  Country: BR (occurrence: BR)
  Receive Date: 20200522
  Receipt Date: 20200612
  Transmission Date: 20200714
  Serious: Yes (Death, Hospitalization)
  Sender: FDA-Public Use
  Company Number: BR-PFIZER INC-2020202738

PATIENT
  Age: 17 Year
  Sex: Male

DRUGS (1)
  1. TALIGLUCERASE ALFA [Suspect]
     Active Substance: TALIGLUCERASE ALFA
     Indication: GAUCHER^S DISEASE TYPE III
     Dosage: UNK
     Route: 042

REACTIONS (4)
  - Seizure [Fatal]
  - Pneumonia aspiration [Fatal]
  - Septic shock [Fatal]
  - Aspiration [Fatal]

NARRATIVE: CASE EVENT DATE: 201912
